FAERS Safety Report 24048790 (Version 1)
Quarter: 2024Q3

REPORT INFORMATION
  Report Type: Spontaneous
  Country: US (occurrence: US)
  Receive Date: 20240704
  Receipt Date: 20240704
  Transmission Date: 20241017
  Serious: Yes (Other)
  Sender: BEIGENE
  Company Number: US-ABBVIE-4769696

PATIENT

DRUGS (2)
  1. BRUKINSA [Suspect]
     Active Substance: ZANUBRUTINIB
     Indication: Mantle cell lymphoma
     Route: 048
  2. VENCLEXTA [Suspect]
     Active Substance: VENETOCLAX
     Indication: Mantle cell lymphoma

REACTIONS (10)
  - Injury [Unknown]
  - Eye operation [Unknown]
  - White blood cell count decreased [Unknown]
  - Fall [Unknown]
  - Eye contusion [Unknown]
  - Platelet count decreased [Unknown]
  - Periorbital haemorrhage [Unknown]
  - Post procedural haemorrhage [Unknown]
  - COVID-19 [Unknown]
  - Contusion [Unknown]
